FAERS Safety Report 6349308-3 (Version None)
Quarter: 2009Q3

REPORT INFORMATION
  Report Type: 
  Country: None (occurrence: None)
  Receive Date: 20090911
  Receipt Date: 20090903
  Transmission Date: 20100115
  Serious: Yes (Hospitalization)
  Sender: FDA-Public Use
  Company Number: B0589638A

PATIENT
  Sex: Female
  Weight: 63 kg

DRUGS (5)
  1. ZANTAC [Suspect]
     Indication: PREMEDICATION
     Dosage: 2ML PER DAY
     Dates: start: 20090818
  2. DIPHENHYDRAMINE HYDROCHLORIDE [Concomitant]
     Dosage: 50MG PER DAY
     Route: 048
     Dates: start: 20090818
  3. DECADRON [Concomitant]
     Indication: PREMEDICATION
     Dosage: 2.5MG PER DAY
     Route: 048
     Dates: start: 20090818
  4. DIPHENHYDRAMINE HCL [Concomitant]
     Indication: PREMEDICATION
     Dosage: 250MG PER DAY
     Route: 048
     Dates: start: 20090818
  5. SOLDEM 3A [Concomitant]
     Indication: FLUID REPLACEMENT
     Dosage: 200ML PER DAY
     Route: 042
     Dates: start: 20090818

REACTIONS (12)
  - ANAPHYLACTIC REACTION [None]
  - ANAPHYLACTIC SHOCK [None]
  - ASTHENIA [None]
  - BLOOD PRESSURE DECREASED [None]
  - BLOOD PRESSURE INCREASED [None]
  - DEPRESSED LEVEL OF CONSCIOUSNESS [None]
  - DIARRHOEA [None]
  - DIZZINESS [None]
  - HYPOTENSION [None]
  - NAUSEA [None]
  - OXYGEN SATURATION DECREASED [None]
  - PALLOR [None]
